FAERS Safety Report 7956121-X (Version None)
Quarter: 2011Q4

REPORT INFORMATION
  Report Type: 
  Country: None (occurrence: None)
  Receive Date: 20111205
  Receipt Date: 20111201
  Transmission Date: 20120403
  Serious: Yes (Other)
  Sender: FDA-Public Use
  Company Number: DE-AMGEN-DEUSP2011058551

PATIENT
  Sex: Female

DRUGS (2)
  1. ANTINEOPLASTIC AGENTS [Concomitant]
  2. NEULASTA [Suspect]
     Indication: CHEMOTHERAPY
     Dosage: 6 MG, ONE TIME DOSE
     Route: 058
     Dates: start: 20110830, end: 20110830

REACTIONS (11)
  - BONE PAIN [None]
  - MUSCULOSKELETAL STIFFNESS [None]
  - FACE OEDEMA [None]
  - BURNING SENSATION [None]
  - NON-CARDIAC CHEST PAIN [None]
  - EMOTIONAL DISTRESS [None]
  - FEAR OF DEATH [None]
  - RENAL PAIN [None]
  - PAIN OF SKIN [None]
  - ERYTHEMA [None]
  - RENAL FAILURE [None]
